FAERS Safety Report 14137106 (Version 3)
Quarter: 2018Q1

REPORT INFORMATION
  Report Type: Report from Study
  Country: FR (occurrence: FR)
  Receive Date: 20171027
  Receipt Date: 20180126
  Transmission Date: 20180508
  Serious: Yes (Death, Hospitalization)
  Sender: FDA-Public Use
  Company Number: FR-VIFOR (INTERNATIONAL) INC.-VIT-2017-11832

PATIENT
  Sex: Male
  Weight: 68 kg

DRUGS (32)
  1. TARDYFERON [Concomitant]
     Active Substance: FERROUS SULFATE
     Indication: ANAEMIA
     Dates: start: 20160930, end: 20161108
  2. ARANESP [Concomitant]
     Active Substance: DARBEPOETIN ALFA
     Indication: ANAEMIA
     Dates: start: 20161027, end: 20161103
  3. ARANESP [Concomitant]
     Active Substance: DARBEPOETIN ALFA
     Dates: start: 20161117, end: 20161122
  4. DICLOFENAC [Concomitant]
     Active Substance: DICLOFENAC
     Indication: ARTHRALGIA
     Dates: start: 20170601, end: 20170607
  5. ZYMA D [Concomitant]
     Indication: VITAMIN SUPPLEMENTATION
     Dates: start: 20161208, end: 20170406
  6. ARANESP [Concomitant]
     Active Substance: DARBEPOETIN ALFA
     Dates: start: 20161122, end: 20161215
  7. ARANESP [Concomitant]
     Active Substance: DARBEPOETIN ALFA
     Dates: start: 20161215, end: 20170112
  8. ARANESP [Concomitant]
     Active Substance: DARBEPOETIN ALFA
     Dates: start: 20170608, end: 20170803
  9. FERMYLAN [Concomitant]
     Dates: start: 20170803, end: 20170912
  10. ARANESP [Concomitant]
     Active Substance: DARBEPOETIN ALFA
     Dates: start: 20161110, end: 20161115
  11. COLECALCIFEROL [Concomitant]
     Active Substance: CHOLECALCIFEROL
     Indication: CHRONIC KIDNEY DISEASE
  12. HEXASPRAY [Concomitant]
     Active Substance: BICLOTYMOL
  13. VELPHORO [Suspect]
     Active Substance: FERRIC OXYHYDROXIDE
     Route: 048
     Dates: start: 20170406, end: 20170913
  14. RENAGEL [Concomitant]
     Active Substance: SEVELAMER HYDROCHLORIDE
     Indication: CHRONIC KIDNEY DISEASE
  15. ARANESP [Concomitant]
     Active Substance: DARBEPOETIN ALFA
     Dates: start: 20170203, end: 20170608
  16. NIFLUGEL [Concomitant]
     Active Substance: NIFLUMIC ACID
     Indication: ARTHRALGIA
     Dosage: 1 APPLIC
     Dates: start: 20170606, end: 20170610
  17. INEXIUM [Concomitant]
     Active Substance: ESOMEPRAZOLE
     Indication: OESOPHAGITIS
     Dates: start: 20161227
  18. FERMYLAN [Concomitant]
     Indication: CHRONIC KIDNEY DISEASE
     Dates: start: 20170302, end: 20170309
  19. FERMYLAN [Concomitant]
     Dates: start: 20170411, end: 20170803
  20. ARANESP [Concomitant]
     Active Substance: DARBEPOETIN ALFA
     Indication: CHRONIC KIDNEY DISEASE
     Dates: start: 20161103, end: 20161110
  21. RENAGEL [Concomitant]
     Active Substance: SEVELAMER HYDROCHLORIDE
     Indication: HYPERPHOSPHATAEMIA
     Dates: start: 20160930, end: 20161025
  22. ZYMA D [Concomitant]
     Indication: CHRONIC KIDNEY DISEASE
  23. KETOPROFEN. [Concomitant]
     Active Substance: KETOPROFEN
     Indication: ARTHRALGIA
     Dates: start: 20170610, end: 20170614
  24. VELPHORO [Suspect]
     Active Substance: FERRIC OXYHYDROXIDE
     Indication: HYPERPHOSPHATAEMIA
     Route: 048
     Dates: start: 20170316
  25. FERMYLAN [Concomitant]
     Indication: ANAEMIA
     Dates: start: 20170112, end: 20170302
  26. ARANESP [Concomitant]
     Active Substance: DARBEPOETIN ALFA
     Dates: start: 20170112, end: 20170203
  27. TARDYFERON [Concomitant]
     Active Substance: FERROUS SULFATE
     Indication: CHRONIC KIDNEY DISEASE
  28. GAVISCON [Concomitant]
     Active Substance: ALUMINUM HYDROXIDE\MAGNESIUM CARBONATE
     Indication: PROPHYLAXIS
     Dates: start: 20161227, end: 20170406
  29. FERMYLAN [Concomitant]
     Dates: start: 20170309, end: 20170411
  30. ARANESP [Concomitant]
     Active Substance: DARBEPOETIN ALFA
     Dates: start: 20161115, end: 20161117
  31. COLECALCIFEROL [Concomitant]
     Active Substance: CHOLECALCIFEROL
     Indication: VITAMIN D DEFICIENCY
     Dates: start: 20170708
  32. INNOHEP [Concomitant]
     Active Substance: TINZAPARIN SODIUM

REACTIONS (1)
  - Septic shock [Fatal]

NARRATIVE: CASE EVENT DATE: 20171019
